FAERS Safety Report 8014769-0 (Version None)
Quarter: 2011Q4

REPORT INFORMATION
  Report Type: 
  Country: None (occurrence: None)
  Receive Date: 20111229
  Receipt Date: 20111221
  Transmission Date: 20120403
  Serious: Yes (Hospitalization)
  Sender: FDA-Public Use
  Company Number: KR-BAXTER-2011BH039776

PATIENT
  Age: 41 Year
  Sex: Female
  Weight: 82 kg

DRUGS (8)
  1. CARVEDILOL [Concomitant]
     Indication: HYPERTENSION
     Route: 048
  2. NUTRINEAL [Suspect]
     Indication: PERITONEAL DIALYSIS
     Route: 033
     Dates: start: 20110201
  3. AMLODIPINE BESYLATE AND VALSARTAN [Concomitant]
     Indication: HYPERTENSION
     Route: 048
  4. CALCIUM CARBONATE [Concomitant]
     Indication: ELECTROLYTE IMBALANCE
     Route: 048
  5. DIANEAL [Suspect]
     Indication: PERITONEAL DIALYSIS
     Route: 033
     Dates: start: 20110201
  6. IRON PREPARATIONS [Concomitant]
     Indication: IRON DEFICIENCY
     Route: 048
  7. RENALMIN [Concomitant]
     Indication: VITAMIN SUPPLEMENTATION
     Route: 048
  8. EXTRANEAL [Suspect]
     Indication: PERITONEAL DIALYSIS
     Route: 033
     Dates: start: 20110201

REACTIONS (1)
  - CELLULITIS [None]
